FAERS Safety Report 13670530 (Version 1)
Quarter: 2017Q2

REPORT INFORMATION
  Report Type: Spontaneous
  Country: GB (occurrence: GB)
  Receive Date: 20170620
  Receipt Date: 20170620
  Transmission Date: 20170830
  Serious: Yes (Hospitalization, Other)
  Sender: FDA-Public Use
  Company Number: GB-MYLANLABS-2017M1036459

PATIENT

DRUGS (12)
  1. ATRACURIUM [Concomitant]
     Active Substance: ATRACURIUM
     Dosage: 30 MG, UNK
     Route: 042
  2. PROPOFOL. [Concomitant]
     Active Substance: PROPOFOL
     Dosage: UNK
     Route: 042
  3. TRAMADOL HYDROCHLORIDE. [Interacting]
     Active Substance: TRAMADOL HYDROCHLORIDE
     Indication: PERIOPERATIVE ANALGESIA
     Dosage: 100MG PLUS 50MG 2 HOURS LATER
     Route: 042
     Dates: start: 20170530, end: 20170530
  4. PARACETAMOL [Concomitant]
     Active Substance: ACETAMINOPHEN
     Dosage: 1 G, UNK
  5. MORPHINE [Concomitant]
     Active Substance: MORPHINE
     Dosage: 15 MG, UNK
     Route: 042
  6. ONDANSETRON [Suspect]
     Active Substance: ONDANSETRON
     Indication: PROPHYLAXIS OF NAUSEA AND VOMITING
     Dosage: 8 MG, UNK
     Route: 042
     Dates: start: 20170530, end: 20170530
  7. TIBOLONE [Concomitant]
     Active Substance: TIBOLONE
     Dosage: LONG TERM
  8. DEXAMETHASONE. [Concomitant]
     Active Substance: DEXAMETHASONE
     Dosage: 3.6 MG, UNK
     Route: 042
  9. GABAPENTIN. [Concomitant]
     Active Substance: GABAPENTIN
     Dosage: 900 MG, TID
  10. PARECOXIB [Concomitant]
     Active Substance: PARECOXIB
     Dosage: 40 MG, UNK
     Route: 042
  11. PRUCALOPRIDE [Interacting]
     Active Substance: PRUCALOPRIDE
     Indication: CONSTIPATION
     Dosage: 2 MG, QD
     Route: 048
  12. REMIFENTANIL [Concomitant]
     Active Substance: REMIFENTANIL
     Dosage: UNK
     Route: 042

REACTIONS (8)
  - Drug interaction [Unknown]
  - Vomiting [Unknown]
  - Renal impairment [Unknown]
  - Somnolence [Unknown]
  - Myoclonus [Unknown]
  - Hyperreflexia [Unknown]
  - Nausea [Unknown]
  - Serotonin syndrome [Recovering/Resolving]

NARRATIVE: CASE EVENT DATE: 20170530
